FAERS Safety Report 22605539 (Version 2)
Quarter: 2023Q2

REPORT INFORMATION
  Report Type: Spontaneous
  Country: None (occurrence: DE)
  Receive Date: 20230615
  Receipt Date: 20230620
  Transmission Date: 20230721
  Serious: Yes (Other)
  Sender: FDA-Public Use
  Company Number: DE-Ascend Therapeutics US, LLC-2142746

PATIENT
  Age: 52 Year
  Sex: Female
  Weight: 83 kg

DRUGS (3)
  1. ESTROGEL [Suspect]
     Active Substance: ESTRADIOL
     Indication: Product used for unknown indication
     Route: 065
     Dates: start: 2023
  2. ESTRADIOL HEMIHYDRATE [Suspect]
     Active Substance: ESTRADIOL HEMIHYDRATE
     Route: 065
     Dates: start: 2023
  3. PROGESTERONE [Suspect]
     Active Substance: PROGESTERONE
     Route: 065
     Dates: start: 2023

REACTIONS (11)
  - Autoimmune thyroiditis [Unknown]
  - Vaginal haemorrhage [Unknown]
  - Heart rate increased [Unknown]
  - Hot flush [Unknown]
  - Restlessness [Unknown]
  - Dry eye [Unknown]
  - Myalgia [Unknown]
  - Alopecia [Unknown]
  - Blood pressure abnormal [Not Recovered/Not Resolved]
  - Headache [Unknown]
  - Product use issue [None]

NARRATIVE: CASE EVENT DATE: 20230101
